FAERS Safety Report 25456455 (Version 1)
Quarter: 2025Q2

REPORT INFORMATION
  Report Type: Spontaneous
  Country: CA (occurrence: CA)
  Receive Date: 20250619
  Receipt Date: 20250619
  Transmission Date: 20250717
  Serious: Yes (Disabling)
  Sender: EISAI
  Company Number: CA-Eisai-EC-2025-191343

PATIENT
  Age: 34 Year
  Sex: Male
  Weight: 83 kg

DRUGS (2)
  1. DAYVIGO [Suspect]
     Active Substance: LEMBOREXANT
     Indication: Sleep disorder
  2. SPIKEVAX [Suspect]
     Active Substance: CX-046684
     Indication: Product used for unknown indication

REACTIONS (2)
  - Palpitations [Not Recovered/Not Resolved]
  - Insomnia [Not Recovered/Not Resolved]
